FAERS Safety Report 9846790 (Version 2)
Quarter: 2014Q3

REPORT INFORMATION
  Report Type: Spontaneous
  Country: US (occurrence: US)
  Receive Date: 20140127
  Receipt Date: 20140715
  Transmission Date: 20150326
  Serious: Yes (Hospitalization, Other)
  Sender: FDA-Public Use
  Company Number: US-009507513-1401USA010797

PATIENT
  Sex: Female
  Weight: 53.52 kg

DRUGS (2)
  1. NUVARING [Suspect]
     Active Substance: ETHINYL ESTRADIOL\ETONOGESTREL
     Dosage: UNK
     Route: 067
     Dates: end: 20130213
  2. NAPROXEN. [Concomitant]
     Active Substance: NAPROXEN
     Dosage: 250 MG, BID
     Route: 048

REACTIONS (7)
  - Anaphylactic shock [Unknown]
  - Malaise [Unknown]
  - Dyspnoea [Unknown]
  - Chest discomfort [Unknown]
  - Deep vein thrombosis [Unknown]
  - Adverse drug reaction [Unknown]
  - Malaise [Unknown]

NARRATIVE: CASE EVENT DATE: 201302
